FAERS Safety Report 4393344-3 (Version None)
Quarter: 2004Q3

REPORT INFORMATION
  Report Type: 
  Country: None (occurrence: None)
  Receive Date: 20040709
  Receipt Date: 20040608
  Transmission Date: 20050211
  Serious: Yes (Other)
  Sender: FDA-Public Use
  Company Number: 200412055JP

PATIENT
  Sex: 0

DRUGS (4)
  1. TAXOTERE [Suspect]
     Indication: LARYNGEAL CANCER
     Dosage: DOSE: UNK
     Route: 041
  2. CISPLATIN [Suspect]
     Indication: LARYNGEAL CANCER
     Dosage: DOSE: UNK
     Route: 041
  3. CARBOPLATIN [Suspect]
     Indication: LARYNGEAL CANCER
     Dosage: DOSE: UNK
     Route: 042
  4. RADIOTHERAPY [Concomitant]
     Indication: LARYNGEAL CANCER
     Dosage: DOSE: UNK

REACTIONS (2)
  - PHARYNGEAL FISTULA [None]
  - POST PROCEDURAL FISTULA [None]
